FAERS Safety Report 7671093-3 (Version None)
Quarter: 2011Q3

REPORT INFORMATION
  Report Type: 
  Country: None (occurrence: None)
  Receive Date: 20110809
  Receipt Date: 20110729
  Transmission Date: 20111222
  Serious: Yes (Life-Threatening, Other)
  Sender: FDA-Public Use
  Company Number: JP-ABBOTT-11P-087-0840514-00

PATIENT
  Sex: Female
  Weight: 52 kg

DRUGS (28)
  1. LANSOPRAZOLE [Concomitant]
     Indication: PYREXIA
  2. ALLEGRA [Concomitant]
     Indication: HEADACHE
  3. ISEPACIN [Concomitant]
     Indication: HEADACHE
  4. DEXTROMETHORPHAN HYDROBROMIDE HYDRATE [Concomitant]
     Indication: PYREXIA
     Route: 048
     Dates: start: 20110701, end: 20110701
  5. ALLEGRA [Concomitant]
     Indication: PHARYNGITIS
     Route: 048
     Dates: start: 20110701, end: 20110701
  6. LANSOPRAZOLE [Concomitant]
     Indication: SINUSITIS
  7. LANSOPRAZOLE [Concomitant]
     Indication: HEADACHE
  8. ISEPACIN [Concomitant]
     Indication: SINUSITIS
  9. ISEPACIN [Concomitant]
     Indication: PYREXIA
  10. DEXTROMETHORPHAN HYDROBROMIDE HYDRATE [Concomitant]
     Indication: SINUSITIS
  11. CLARITHROMYCIN [Suspect]
     Indication: PHARYNGITIS
     Route: 048
     Dates: start: 20110701, end: 20110701
  12. CLINDAMYCIN [Suspect]
     Indication: PYREXIA
  13. LANSOPRAZOLE [Concomitant]
     Indication: PHARYNGITIS
     Route: 048
     Dates: start: 20110701, end: 20110701
  14. ALLEGRA [Concomitant]
     Indication: PYREXIA
  15. DEXTROMETHORPHAN HYDROBROMIDE HYDRATE [Concomitant]
     Indication: PHARYNGITIS
  16. CLARITHROMYCIN [Suspect]
     Indication: SINUSITIS
  17. CLARITHROMYCIN [Suspect]
     Indication: PYREXIA
  18. CLINDAMYCIN [Suspect]
     Indication: SINUSITIS
  19. CLINDAMYCIN [Suspect]
     Indication: PHARYNGITIS
     Route: 042
     Dates: start: 20110701, end: 20110701
  20. MONTELUKAST SODIUM [Concomitant]
     Indication: SINUSITIS
  21. MONTELUKAST SODIUM [Concomitant]
     Indication: PYREXIA
  22. ISEPACIN [Concomitant]
     Indication: PHARYNGITIS
     Route: 042
     Dates: start: 20110701, end: 20110701
  23. CLINDAMYCIN [Suspect]
     Indication: HEADACHE
  24. MONTELUKAST SODIUM [Concomitant]
     Indication: HEADACHE
  25. CLARITHROMYCIN [Suspect]
     Indication: HEADACHE
  26. ALLEGRA [Concomitant]
     Indication: SINUSITIS
  27. MONTELUKAST SODIUM [Concomitant]
     Indication: PHARYNGITIS
     Route: 048
     Dates: start: 20110701, end: 20110701
  28. DEXTROMETHORPHAN HYDROBROMIDE HYDRATE [Concomitant]
     Indication: HEADACHE

REACTIONS (5)
  - DYSPNOEA [None]
  - PYREXIA [None]
  - EAR DISCOMFORT [None]
  - COUGH [None]
  - GENERALISED ERYTHEMA [None]
